FAERS Safety Report 5260247-1 (Version None)
Quarter: 2007Q1

REPORT INFORMATION
  Report Type: 
  Country: None (occurrence: None)
  Receive Date: 20070309
  Receipt Date: 20060525
  Transmission Date: 20070707
  Serious: No
  Sender: FDA-Public Use
  Company Number: US-GLAXOSMITHKLINE-A0606732A

PATIENT
  Age: 52 Year
  Sex: Female

DRUGS (1)
  1. EQUATE NICOTINE GUM 2MG [Suspect]
     Dates: start: 20060523

REACTIONS (1)
  - PAIN IN JAW [None]
